FAERS Safety Report 11748885 (Version 1)
Quarter: 2015Q4

REPORT INFORMATION
  Report Type: Spontaneous
  Country: US (occurrence: US)
  Receive Date: 20151118
  Receipt Date: 20151118
  Transmission Date: 20160304
  Serious: Yes (Hospitalization, Other)
  Sender: FDA-Public Use
  Company Number: US-PAR PHARMACEUTICAL COMPANIES-2015SCPR014471

PATIENT

DRUGS (14)
  1. CELECOXIB;IBUPROFEN/NAPROXEN;PLACEBO (CODE NOT BROKEN) [Suspect]
     Active Substance: CELECOXIB\IBUPROFEN\NAPROXEN\PLACEBO
     Indication: OSTEOARTHRITIS
     Dosage: UNK UNK, UNKNOWN
     Route: 065
     Dates: start: 20110426, end: 20110609
  2. LIPITOR [Concomitant]
     Active Substance: ATORVASTATIN CALCIUM
     Indication: HYPERCHOLESTEROLAEMIA
     Dosage: UNK UNK, OD
     Route: 065
     Dates: start: 1997, end: 201106
  3. LORTAB [Concomitant]
     Active Substance: ACETAMINOPHEN\HYDROCODONE BITARTRATE
     Indication: BACK PAIN
     Dosage: UNK UNK, UNKNOWN
     Route: 048
     Dates: start: 2010
  4. LYRICA [Concomitant]
     Active Substance: PREGABALIN
     Indication: FIBROMYALGIA
     Dosage: UNK UNK, OD
     Route: 048
     Dates: start: 2010
  5. CELECOXIB;IBUPROFEN/NAPROXEN;PLACEBO (CODE NOT BROKEN) [Suspect]
     Active Substance: CELECOXIB\IBUPROFEN\NAPROXEN\PLACEBO
     Indication: RHEUMATOID ARTHRITIS
  6. LISINOPRIL. [Suspect]
     Active Substance: LISINOPRIL
     Indication: HYPERTENSION
     Dosage: 20 MG, BID
     Route: 048
     Dates: start: 2009, end: 20110627
  7. INDOMETHACIN                       /00003801/ [Concomitant]
     Active Substance: INDOMETHACIN
     Indication: GOUT
     Dosage: UNK, UNKNOWN
     Route: 048
     Dates: end: 20110627
  8. MEGESTROL ACETATE. [Suspect]
     Active Substance: MEGESTROL ACETATE
     Indication: DECREASED APPETITE
  9. NYSTATIN. [Suspect]
     Active Substance: NYSTATIN
     Indication: BURSITIS INFECTIVE
     Dosage: 10 ML, QID
     Route: 048
     Dates: start: 20110626, end: 20110627
  10. NEXIUM [Concomitant]
     Active Substance: ESOMEPRAZOLE MAGNESIUM
     Indication: GASTRIC DISORDER
     Dosage: 40 MG, DAILY
     Route: 065
     Dates: start: 20110426, end: 20110609
  11. PLETAL [Concomitant]
     Active Substance: CILOSTAZOL
     Indication: PERIPHERAL VASCULAR DISORDER
     Dosage: UNK UNK, UNKNOWN
     Route: 048
     Dates: start: 2007
  12. MEGESTROL ACETATE. [Suspect]
     Active Substance: MEGESTROL ACETATE
     Indication: NAUSEA
     Dosage: 40 MG, OD
     Route: 048
     Dates: end: 20110627
  13. METOPROLOL [Concomitant]
     Active Substance: METOPROLOL
     Indication: HYPERTENSION
     Dosage: UNK, UNKNOWN
     Route: 048
     Dates: start: 20110315
  14. FLOMAX [Concomitant]
     Active Substance: TAMSULOSIN HYDROCHLORIDE
     Indication: BENIGN PROSTATIC HYPERPLASIA
     Dosage: UNK MG, OD
     Route: 048
     Dates: start: 2009

REACTIONS (11)
  - Bursitis infective [None]
  - Cerebrovascular accident [None]
  - Urinary retention [None]
  - Chest pain [None]
  - Fibromyalgia [None]
  - Anaemia [None]
  - Dyspnoea [None]
  - Syncope [None]
  - Carotid artery disease [None]
  - Hyponatraemia [Recovered/Resolved]
  - Rash [None]

NARRATIVE: CASE EVENT DATE: 20110626
